FAERS Safety Report 5113965-X (Version None)
Quarter: 2006Q3

REPORT INFORMATION
  Report Type: 
  Country: None (occurrence: None)
  Receive Date: 20060921
  Receipt Date: 20060912
  Transmission Date: 20061208
  Serious: Yes (Hospitalization)
  Sender: FDA-Public Use
  Company Number: 2005BI003058

PATIENT
  Age: 38 Year
  Sex: Female

DRUGS (5)
  1. AVONEX [Suspect]
     Indication: MULTIPLE SCLEROSIS
     Dosage: 30 UG;QW;IM
     Route: 030
     Dates: start: 19970710, end: 20030701
  2. AVONEX [Suspect]
     Indication: MULTIPLE SCLEROSIS
     Dosage: 30 UG;QW;IM
     Route: 030
     Dates: start: 20030801, end: 20040701
  3. AVONEX [Suspect]
     Indication: MULTIPLE SCLEROSIS
     Dosage: 30 UG;QW;IM
     Route: 030
     Dates: start: 20040801
  4. AVONEX [Suspect]
  5. AVONEX [Suspect]

REACTIONS (11)
  - BACK PAIN [None]
  - CERVIX CARCINOMA STAGE II [None]
  - DYSPAREUNIA [None]
  - GONORRHOEA [None]
  - HAEMATURIA [None]
  - MENSTRUATION IRREGULAR [None]
  - OVARIAN CYST [None]
  - PELVIC PAIN [None]
  - SQUAMOUS CELL CARCINOMA [None]
  - URINARY HESITATION [None]
  - UTERINE CANCER [None]
